FAERS Safety Report 8814072 (Version 3)
Quarter: 2013Q1

REPORT INFORMATION
  Report Type: Spontaneous
  Country: US (occurrence: US)
  Receive Date: 20120928
  Receipt Date: 20130103
  Transmission Date: 20140127
  Serious: Yes (Other)
  Sender: FDA-Public Use
  Company Number: US-PFIZER INC-2012237655

PATIENT
  Age: 58 Year
  Sex: Male
  Weight: 77.55 kg

DRUGS (2)
  1. GEODON [Suspect]
     Indication: AFFECTIVE DISORDER
     Dosage: 80 MG, 2X/DAY
     Route: 048
  2. RISPERIDONE [Concomitant]
     Dosage: UNK

REACTIONS (4)
  - Diabetes mellitus [Unknown]
  - Hypertension [Unknown]
  - Bladder disorder [Unknown]
  - Blood testosterone abnormal [Not Recovered/Not Resolved]
